FAERS Safety Report 19961532 (Version 2)
Quarter: 2021Q4

REPORT INFORMATION
  Report Type: Spontaneous
  Country: US (occurrence: US)
  Receive Date: 20211017
  Receipt Date: 20211020
  Transmission Date: 20220304
  Serious: No
  Sender: FDA-Public Use
  Company Number: US-SANOFI-00809047

PATIENT
  Sex: Female

DRUGS (1)
  1. TOUJEO MAX [Suspect]
     Active Substance: INSULIN GLARGINE
     Indication: Type 2 diabetes mellitus
     Dosage: 16 IU, QD
     Route: 065

REACTIONS (1)
  - Blood glucose abnormal [Unknown]
